FAERS Safety Report 9369797 (Version 1)
Quarter: 2013Q2

REPORT INFORMATION
  Report Type: Spontaneous
  Country: JP (occurrence: JP)
  Receive Date: 20130626
  Receipt Date: 20130626
  Transmission Date: 20140414
  Serious: Yes (Other)
  Sender: FDA-Public Use
  Company Number: JP-PFIZER INC-2013188893

PATIENT
  Sex: Female

DRUGS (5)
  1. SOLANAX [Suspect]
     Indication: INSOMNIA
     Dosage: 1.2 MG/DAY
     Route: 048
     Dates: end: 201301
  2. SOLANAX [Suspect]
     Indication: PANIC DISORDER
     Dosage: 0.2 MG/DAY ((HALF TABLET OF 0.4MG)
     Route: 048
     Dates: start: 201306
  3. SOLANAX [Suspect]
     Indication: PROPHYLAXIS
  4. PAXIL [Concomitant]
     Dosage: UNK
  5. MYSLEE [Concomitant]
     Dosage: UNK

REACTIONS (7)
  - Hyperventilation [Unknown]
  - Palpitations [Unknown]
  - Throat tightness [Unknown]
  - Hyperacusis [Unknown]
  - Joint stiffness [Unknown]
  - Tremor [Unknown]
  - Off label use [Unknown]
